FAERS Safety Report 5816546-5 (Version None)
Quarter: 2008Q3

REPORT INFORMATION
  Report Type: 
  Country: None (occurrence: None)
  Receive Date: 20080716
  Receipt Date: 20070719
  Transmission Date: 20090109
  Serious: Yes (Other)
  Sender: FDA-Public Use
  Company Number: US-JNJFOC-2007074489

PATIENT
  Age: 49 Year
  Sex: Female
  Weight: 81.6475 kg

DRUGS (3)
  1. MOTRIN IB [Suspect]
     Indication: DIARRHOEA
     Dosage: 2000 MG, IN 24 HOUR
     Dates: start: 20070717, end: 20070719
  2. MOTRIN IB [Suspect]
     Indication: PYREXIA
     Dosage: 2000 MG, IN 24 HOUR
     Dates: start: 20070717, end: 20070719
  3. CYMBALTA [Concomitant]

REACTIONS (2)
  - HAEMATOCHEZIA [None]
  - INCORRECT DOSE ADMINISTERED [None]
